FAERS Safety Report 9792417 (Version 1)
Quarter: 2014Q1

REPORT INFORMATION
  Report Type: Spontaneous
  Country: US (occurrence: US)
  Receive Date: 20140102
  Receipt Date: 20140102
  Transmission Date: 20141002
  Serious: No
  Sender: FDA-Public Use
  Company Number: US-BIOGENIDEC-2013BI123307

PATIENT
  Sex: Female

DRUGS (1)
  1. TECFIDERA [Suspect]
     Indication: MULTIPLE SCLEROSIS
     Dates: start: 20130502, end: 20130723

REACTIONS (4)
  - Multiple sclerosis relapse [Recovered/Resolved]
  - Diplegia [Not Recovered/Not Resolved]
  - Urinary incontinence [Recovered/Resolved]
  - Faecal incontinence [Recovered/Resolved]
